FAERS Safety Report 4987729-1 (Version None)
Quarter: 2006Q2

REPORT INFORMATION
  Report Type: 
  Country: None (occurrence: None)
  Receive Date: 20060501
  Receipt Date: 20060425
  Transmission Date: 20061013
  Serious: Yes (Hospitalization)
  Sender: FDA-Public Use
  Company Number: US-ABBOTT-06P-163-0331727-00

PATIENT
  Sex: Female
  Weight: 83.6 kg

DRUGS (4)
  1. VICODIN [Suspect]
     Indication: BONE PAIN
     Dosage: 1 TAB EVERY 4-6 HOURS
     Route: 048
     Dates: start: 20030428, end: 20030518
  2. EPIRUBICIN HYDROCHLORIDE [Suspect]
     Indication: BREAST CANCER
     Route: 042
     Dates: start: 20030422, end: 20030513
  3. DOCETAXEL [Suspect]
     Indication: BREAST CANCER
     Route: 042
     Dates: start: 20030422, end: 20030513
  4. LEUKINE [Concomitant]
     Indication: NEUTROPENIA
     Route: 058
     Dates: start: 20030515, end: 20030517

REACTIONS (2)
  - DIZZINESS [None]
  - SYNCOPE [None]
